FAERS Safety Report 8368112-8 (Version None)
Quarter: 2012Q2

REPORT INFORMATION
  Report Type: 
  Country: None (occurrence: None)
  Receive Date: 20120517
  Receipt Date: 20120509
  Transmission Date: 20120825
  Serious: Yes (Hospitalization, Other)
  Sender: FDA-Public Use
  Company Number: US-BRISTOL-MYERS SQUIBB COMPANY-16387755

PATIENT
  Age: 77 Year
  Sex: Male

DRUGS (11)
  1. ENALAPRIL MALEATE [Concomitant]
  2. METFORMIN HCL [Concomitant]
  3. ZANTAC [Concomitant]
  4. MULTI-VITAMINS [Concomitant]
  5. SENOKOT [Concomitant]
  6. GLIPIZIDE [Concomitant]
  7. METOPROLOL [Concomitant]
  8. PRIMIDONE [Concomitant]
  9. SIMVASTATIN [Concomitant]
  10. YERVOY [Suspect]
     Indication: METASTATIC MALIGNANT MELANOMA
     Dosage: 03OCT11,24OCT11,14NOV11,15DEC11 DOSES:4 4TH DOSE ON DEC5TH
     Route: 042
     Dates: start: 20111003, end: 20111215
  11. LEVOTHYROXINE SODIUM [Concomitant]

REACTIONS (3)
  - HAEMATURIA [None]
  - CONSTIPATION [None]
  - BENIGN PROSTATIC HYPERPLASIA [None]
